FAERS Safety Report 17846229 (Version 1)
Quarter: 2020Q2

REPORT INFORMATION
  Report Type: Spontaneous
  Country: US (occurrence: US)
  Receive Date: 20200601
  Receipt Date: 20200601
  Transmission Date: 20200714
  Serious: No
  Sender: FDA-Public Use
  Company Number: None

PATIENT
  Age: 30 Year
  Sex: Female
  Weight: 78.75 kg

DRUGS (2)
  1. VITAMIN D SUPPLEMENT [Concomitant]
     Active Substance: VITAMIN D NOS
  2. DEPO-PROVERA [Suspect]
     Active Substance: MEDROXYPROGESTERONE ACETATE
     Indication: CONTRACEPTION
     Dosage: ?          OTHER FREQUENCY:ONCE EVERY 3 MONTH;?
     Route: 058
     Dates: start: 20200201

REACTIONS (2)
  - Hallucinations, mixed [None]
  - Formication [None]

NARRATIVE: CASE EVENT DATE: 20200530
